FAERS Safety Report 9936422 (Version 2)
Quarter: 2014Q1

REPORT INFORMATION
  Report Type: Spontaneous
  Country: US (occurrence: US)
  Receive Date: 20140228
  Receipt Date: 20140228
  Transmission Date: 20141002
  Serious: No
  Sender: FDA-Public Use
  Company Number: US-AMGEN-USASP2014001927

PATIENT
  Age: 67 Year
  Sex: Female
  Weight: 61.22 kg

DRUGS (9)
  1. ENBREL [Suspect]
     Indication: PRODUCT USED FOR UNKNOWN INDICATION
     Dosage: 50 MG, QWK
     Route: 058
  2. COZAAR [Concomitant]
     Dosage: 100 MG, UNK
     Route: 048
  3. ATENOLOL [Concomitant]
     Dosage: 25 MG, UNK
     Route: 048
  4. HYDROCHLOROTH [Concomitant]
     Dosage: 12.5 MG, UNK
     Route: 048
  5. CITRACAL PLUS [Concomitant]
     Dosage: UNK
     Route: 048
  6. ATORVASTATIN                       /01326102/ [Concomitant]
     Dosage: 10 MG, UNK
     Route: 048
  7. OSTEO-BI-FLEX [Concomitant]
     Dosage: UNK
  8. LOXIN                              /00328002/ [Concomitant]
     Dosage: UNK
     Route: 048
  9. CO Q 10                            /00517201/ [Concomitant]
     Dosage: 100 MG, UNK
     Route: 048

REACTIONS (1)
  - Epistaxis [Unknown]
